FAERS Safety Report 18561588 (Version 1)
Quarter: 2020Q4

REPORT INFORMATION
  Report Type: Spontaneous
  Country: IN (occurrence: IN)
  Receive Date: 20201130
  Receipt Date: 20201130
  Transmission Date: 20210114
  Serious: Yes (Other)
  Sender: FDA-Public Use
  Company Number: IN-SCILEX PHARMACEUTICALS INC.-2020SCX00044

PATIENT
  Age: 63 Year
  Sex: Male

DRUGS (5)
  1. TROPICAMIDE. [Concomitant]
     Active Substance: TROPICAMIDE
     Indication: PUPIL DILATION PROCEDURE
     Dosage: UNK
     Route: 065
  2. PHENYLEPHRINE [Concomitant]
     Active Substance: PHENYLEPHRINE HYDROCHLORIDE
     Indication: PUPIL DILATION PROCEDURE
     Route: 065
  3. ADRENALINE [Concomitant]
     Active Substance: EPINEPHRINE
     Indication: ANAESTHESIA
     Route: 065
  4. HYALURONIDASE [Concomitant]
     Active Substance: HYALURONIDASE
     Indication: ANAESTHESIA
     Dosage: 500 IU
     Route: 065
  5. LIDOCAINE. [Suspect]
     Active Substance: LIDOCAINE
     Indication: ANAESTHESIA
     Dosage: 4 ML OF A 2% SOLUTION
     Route: 065

REACTIONS (3)
  - Optic atrophy [Recovering/Resolving]
  - Periorbital oedema [Recovered/Resolved]
  - Drug hypersensitivity [Recovered/Resolved]
